FAERS Safety Report 7715183-5 (Version None)
Quarter: 2011Q3

REPORT INFORMATION
  Report Type: 
  Country: None (occurrence: None)
  Receive Date: 20110829
  Receipt Date: 20110823
  Transmission Date: 20111222
  Serious: Yes (Hospitalization)
  Sender: FDA-Public Use
  Company Number: JP-BRISTOL-MYERS SQUIBB COMPANY-15993389

PATIENT
  Age: 64 Year
  Sex: Male
  Weight: 104 kg

DRUGS (9)
  1. GLUCOPHAGE [Concomitant]
  2. REMERON [Concomitant]
  3. COREG [Concomitant]
  4. ZOMETA [Concomitant]
  5. ZOCOR [Concomitant]
  6. IPILIMUMAB [Suspect]
     Indication: MALIGNANT MELANOMA
     Dosage: NO OF COURSES : 1,REMOVED FROM PROTOCOL 17AUG11
     Route: 042
     Dates: start: 20110727, end: 20110727
  7. ASPIRIN [Concomitant]
  8. HYDROCHLOROTHIAZIDE [Concomitant]
  9. NORVASC [Concomitant]

REACTIONS (7)
  - ALANINE AMINOTRANSFERASE INCREASED [None]
  - ASPARTATE AMINOTRANSFERASE INCREASED [None]
  - MUSCULAR WEAKNESS [None]
  - DEHYDRATION [None]
  - BLOOD ALKALINE PHOSPHATASE INCREASED [None]
  - FATIGUE [None]
  - DECREASED APPETITE [None]
